FAERS Safety Report 8777008 (Version 1)
Quarter: 2012Q4

REPORT INFORMATION
  Report Type: Report from Study
  Country: US (occurrence: US)
  Receive Date: 20120911
  Receipt Date: 20120911
  Transmission Date: 20130627
  Serious: Yes (Hospitalization)
  Sender: FDA-Public Use
  Company Number: US-GLAXOSMITHKLINE-Z0004142A

PATIENT
  Age: 47 Year
  Sex: Female
  Weight: 65.5 kg

DRUGS (1)
  1. PAZOPANIB [Suspect]
     Indication: OVARIAN CANCER
     Dosage: 800MG Per day
     Route: 048
     Dates: start: 20100309

REACTIONS (1)
  - Pulmonary embolism [Recovered/Resolved]
